FAERS Safety Report 6368818-6 (Version None)
Quarter: 2009Q3

REPORT INFORMATION
  Report Type: 
  Country: None (occurrence: None)
  Receive Date: 20090918
  Receipt Date: 20090918
  Transmission Date: 20100115
  Serious: Yes (Hospitalization)
  Sender: FDA-Public Use
  Company Number: None

PATIENT
  Sex: Female
  Weight: 86.1834 kg

DRUGS (1)
  1. PLAVIX [Suspect]
     Dosage: 1 DAILY

REACTIONS (2)
  - EYE DISORDER [None]
  - ULCER HAEMORRHAGE [None]
